FAERS Safety Report 8254718-3 (Version None)
Quarter: 2012Q2

REPORT INFORMATION
  Report Type: 
  Country: None (occurrence: None)
  Receive Date: 20120403
  Receipt Date: 20120329
  Transmission Date: 20120825
  Serious: Yes (Hospitalization)
  Sender: FDA-Public Use
  Company Number: JP-SANOFI-AVENTIS-2012SA003888

PATIENT
  Age: 62 Year
  Sex: Female
  Weight: 50.7 kg

DRUGS (14)
  1. SILECE [Concomitant]
     Route: 048
  2. DOGMATYL [Concomitant]
     Route: 048
  3. METHYCOBAL [Concomitant]
     Route: 048
  4. LANTUS [Concomitant]
     Dosage: DOSE:8 UNIT(S)
     Dates: end: 20110701
  5. SOLOSTAR [Suspect]
     Indication: DEVICE THERAPY
     Dates: start: 20110311, end: 20110701
  6. LENDORMIN [Concomitant]
     Route: 048
  7. JUVELA [Concomitant]
     Route: 048
  8. LORAZEPAM [Concomitant]
     Route: 048
  9. TEGRETOL [Concomitant]
     Route: 048
  10. BIPERIDEN LACTATE [Concomitant]
     Indication: DIABETIC NEUROPATHY
     Route: 048
  11. APIDRA SOLOSTAR [Suspect]
     Indication: DIABETES MELLITUS
     Dosage: DOSE:4 UNIT(S)
     Route: 065
     Dates: start: 20110311, end: 20110701
  12. AMOXAPINE [Concomitant]
     Route: 048
  13. VITAMEDIN S [Concomitant]
     Route: 048
  14. NOVORAPID [Concomitant]
     Dosage: 4 UNITS EACH AT MORNING, DAYTIME AND EVENING DOSE:4 UNIT(S)
     Dates: end: 20110310

REACTIONS (1)
  - MENTAL DISORDER [None]
